FAERS Safety Report 19866370 (Version 1)
Quarter: 2021Q3

REPORT INFORMATION
  Report Type: Spontaneous
  Country: US (occurrence: US)
  Receive Date: 20210921
  Receipt Date: 20210921
  Transmission Date: 20211014
  Serious: Yes (Other)
  Sender: FDA-Public Use
  Company Number: US-TAKEDA-2021TUS056775

PATIENT
  Age: 54 Year
  Sex: Male

DRUGS (3)
  1. FOSCARNET [Concomitant]
     Active Substance: FOSCARNET
  2. HUMAN NORMAL IMMUNOGLOBULIN [Suspect]
     Active Substance: HUMAN IMMUNOGLOBULIN G
     Indication: PRODUCT USED FOR UNKNOWN INDICATION
     Route: 042
  3. VALGANCICLOVIR. [Concomitant]
     Active Substance: VALGANCICLOVIR

REACTIONS (3)
  - Pyrexia [Unknown]
  - Hypoxia [Unknown]
  - Respiratory disorder [Unknown]
